FAERS Safety Report 12017995 (Version 1)
Quarter: 2016Q1

REPORT INFORMATION
  Report Type: Report from Study
  Country: US (occurrence: US)
  Receive Date: 20160205
  Receipt Date: 20160205
  Transmission Date: 20160526
  Serious: No
  Sender: FDA-Public Use
  Company Number: US-ABBVIE-15K-163-1452989-00

PATIENT
  Age: 31 Year
  Sex: Male

DRUGS (2)
  1. HUMIRA [Suspect]
     Active Substance: ADALIMUMAB
     Indication: ANKYLOSING SPONDYLITIS
  2. HUMIRA [Suspect]
     Active Substance: ADALIMUMAB
     Indication: CROHN^S DISEASE
     Route: 065

REACTIONS (6)
  - Influenza like illness [Not Recovered/Not Resolved]
  - Pain [Not Recovered/Not Resolved]
  - Device issue [Unknown]
  - Insomnia [Not Recovered/Not Resolved]
  - Incorrect dose administered [Unknown]
  - Malaise [Unknown]

NARRATIVE: CASE EVENT DATE: 20150823
